FAERS Safety Report 6310928-3 (Version None)
Quarter: 2009Q3

REPORT INFORMATION
  Report Type: 
  Country: None (occurrence: None)
  Receive Date: 20090815
  Receipt Date: 20090806
  Transmission Date: 20100115
  Serious: Yes (Hospitalization)
  Sender: FDA-Public Use
  Company Number: JP-ASTRAZENECA-2009SE05730

PATIENT
  Age: 69 Year
  Sex: Male
  Weight: 56 kg

DRUGS (7)
  1. IRESSA [Suspect]
     Indication: LUNG NEOPLASM MALIGNANT
     Route: 048
     Dates: start: 20090703, end: 20090721
  2. OLMETEC [Concomitant]
     Indication: HYPERTENSION
     Route: 048
     Dates: start: 20070319
  3. VOLTAREN [Concomitant]
     Indication: CANCER PAIN
     Dosage: DOSE UNKNOWN
     Route: 048
     Dates: start: 20080111
  4. DEPAKENE [Concomitant]
     Indication: BRAIN NEOPLASM
     Route: 048
     Dates: start: 20081212
  5. NORVASC [Concomitant]
     Indication: HYPERTENSION
     Route: 048
     Dates: start: 20090305
  6. OMEPRAL TABLETS [Concomitant]
     Indication: PROPHYLAXIS AGAINST GASTROINTESTINAL ULCER
     Route: 048
     Dates: start: 20090305
  7. SENNARIDE [Concomitant]
     Indication: CONSTIPATION
     Route: 048
     Dates: start: 20090709

REACTIONS (1)
  - CELLULITIS LARYNGEAL [None]
